FAERS Safety Report 18713880 (Version 2)
Quarter: 2021Q1

REPORT INFORMATION
  Report Type: Spontaneous
  Country: US (occurrence: US)
  Receive Date: 20210107
  Receipt Date: 20210205
  Transmission Date: 20210419
  Serious: Yes (Life-Threatening, Hospitalization)
  Sender: FDA-Public Use
  Company Number: US-TEVA-2020-US-1865189

PATIENT
  Age: 55 Year
  Sex: Female

DRUGS (7)
  1. HYDRALAZINE [Concomitant]
     Active Substance: HYDRALAZINE HYDROCHLORIDE
     Indication: ESSENTIAL HYPERTENSION
     Dosage: THRICE DAILY
     Route: 065
  2. BUMETANIDE. [Concomitant]
     Active Substance: BUMETANIDE
     Indication: ESSENTIAL HYPERTENSION
     Dosage: DOSE INCREASED DURING HOSPITAL STAY
     Route: 065
  3. METOLAZONE. [Concomitant]
     Active Substance: METOLAZONE
     Indication: ESSENTIAL HYPERTENSION
     Dosage: IN THE MORNING
     Route: 065
  4. BUMETANIDE. [Concomitant]
     Active Substance: BUMETANIDE
     Indication: ESSENTIAL HYPERTENSION
     Route: 065
  5. ATORVASTATIN [Concomitant]
     Active Substance: ATORVASTATIN
     Indication: PRODUCT USED FOR UNKNOWN INDICATION
     Route: 065
  6. DILTIAZEM. [Suspect]
     Active Substance: DILTIAZEM
     Indication: ESSENTIAL HYPERTENSION
     Route: 065
  7. INSULIN GLARGINE [Concomitant]
     Active Substance: INSULIN GLARGINE
     Indication: TYPE 2 DIABETES MELLITUS
     Dosage: 18 UNITS AT NIGHT
     Route: 058

REACTIONS (4)
  - Pulmonary congestion [Recovering/Resolving]
  - Pleural effusion [Recovering/Resolving]
  - End stage renal disease [Recovered/Resolved]
  - BRASH syndrome [Recovering/Resolving]
